FAERS Safety Report 22132424 (Version 1)
Quarter: 2023Q1

REPORT INFORMATION
  Report Type: Spontaneous
  Country: CA (occurrence: CA)
  Receive Date: 20230323
  Receipt Date: 20230323
  Transmission Date: 20230418
  Serious: Yes (Hospitalization, Other)
  Sender: FDA-Public Use
  Company Number: CA-KARYOPHARM-2022KPT001169

PATIENT

DRUGS (5)
  1. XPOVIO [Suspect]
     Active Substance: SELINEXOR
     Indication: Plasma cell myeloma
     Dosage: 60 MG, WEEKLY FOR 5 WEEKS (1 CYCLE)
     Route: 048
     Dates: start: 20220923, end: 20221125
  2. ONDANSETRON HYDROCHLORIDE [Concomitant]
     Active Substance: ONDANSETRON HYDROCHLORIDE
     Dosage: UNK
     Dates: start: 20220923
  3. APREPITANT [Concomitant]
     Active Substance: APREPITANT
     Dosage: UNK
     Dates: start: 20220923
  4. BORTEZOMIB [Concomitant]
     Active Substance: BORTEZOMIB
     Dosage: UNK
     Dates: start: 20220923
  5. DEXAMETHASONE [Concomitant]
     Active Substance: DEXAMETHASONE
     Dosage: UNK
     Dates: start: 20220923

REACTIONS (14)
  - Hip fracture [Unknown]
  - Fall [Unknown]
  - Somnolence [Unknown]
  - Muscle spasms [Unknown]
  - Musculoskeletal chest pain [Unknown]
  - Malaise [Unknown]
  - Gastrointestinal disorder [Unknown]
  - Dysphagia [Unknown]
  - Oesophagitis [Unknown]
  - Asthenia [Unknown]
  - Weight decreased [Not Recovered/Not Resolved]
  - Decreased appetite [Not Recovered/Not Resolved]
  - Fatigue [Unknown]
  - Nausea [Unknown]

NARRATIVE: CASE EVENT DATE: 20220101
